FAERS Safety Report 5006238-7 (Version None)
Quarter: 2006Q1

REPORT INFORMATION
  Report Type: 
  Country: None (occurrence: None)
  Receive Date: 20060327
  Receipt Date: 20060111
  Transmission Date: 20060701
  Serious: No
  Sender: FDA-Public Use
  Company Number: 221020

PATIENT
  Age: 36 Year
  Sex: Male
  Weight: 186 kg

DRUGS (3)
  1. AVASTIN [Suspect]
     Indication: ADRENAL GLAND CANCER METASTATIC
     Dosage: 832 MG, Q2W, INTRAVENOUS
     Route: 042
     Dates: start: 20051011
  2. METOPROLOL TARTRATE [Concomitant]
  3. LISINOPRIL [Concomitant]

REACTIONS (1)
  - MUSCLE SPASMS [None]
